FAERS Safety Report 4852856-6 (Version None)
Quarter: 2005Q4

REPORT INFORMATION
  Report Type: 
  Country: None (occurrence: None)
  Receive Date: 20051212
  Receipt Date: 20051202
  Transmission Date: 20060501
  Serious: Yes (Other)
  Sender: FDA-Public Use
  Company Number: 2004-12-0248

PATIENT
  Age: 36 Year
  Sex: Female

DRUGS (4)
  1. INTRON A [Suspect]
     Indication: HEPATITIS C
     Dosage: 6 MIU TIW INTRAMUSCULAR
     Route: 030
     Dates: start: 20040106, end: 20040622
  2. INTRON A [Suspect]
     Indication: HEPATITIS C
     Dosage: 6 MIU TIW INTRAMUSCULAR
     Route: 030
     Dates: start: 20040106, end: 20041203
  3. INTRON A [Suspect]
     Indication: HEPATITIS C
     Dosage: 6 MIU TIW INTRAMUSCULAR
     Route: 030
     Dates: start: 20040623, end: 20041203
  4. REBETOL [Suspect]
     Indication: HEPATITIS C
     Dosage: 600 MG ORAL
     Route: 048
     Dates: start: 20040106, end: 20040622

REACTIONS (1)
  - IDIOPATHIC THROMBOCYTOPENIC PURPURA [None]
